FAERS Safety Report 5973508-5 (Version None)
Quarter: 2008Q4

REPORT INFORMATION
  Report Type: 
  Country: None (occurrence: None)
  Receive Date: 20081201
  Receipt Date: 20081118
  Transmission Date: 20090506
  Serious: Yes (Hospitalization)
  Sender: FDA-Public Use
  Company Number: US-AVENTIS-200817882US

PATIENT
  Sex: Female

DRUGS (14)
  1. LOVENOX [Suspect]
     Dosage: DOSE: UNK
     Dates: start: 20081107
  2. PLAVIX [Suspect]
     Indication: ATRIAL FIBRILLATION
     Route: 048
     Dates: start: 20050101
  3. LANTUS [Suspect]
     Dosage: DOSE: UNK
  4. DRUGS AFFECTING MINERALIZATION [Concomitant]
  5. TOPROL-XL [Concomitant]
  6. DIGITEK [Concomitant]
  7. SYNTHROID [Concomitant]
  8. LISINOPRIL [Concomitant]
  9. MEDROL [Concomitant]
  10. STARLIX [Concomitant]
  11. DRISDOL [Concomitant]
     Dosage: DOSE: 50,000
  12. KEFLEX [Concomitant]
     Route: 048
  13. ARANESP [Concomitant]
     Indication: BLOOD DISORDER
     Dosage: DOSE: UNK
  14. NOVOLOG [Concomitant]
     Dosage: DOSE: UNK

REACTIONS (2)
  - CONTUSION [None]
  - PAIN [None]
